FAERS Safety Report 9775306 (Version 3)
Quarter: 2014Q1

REPORT INFORMATION
  Report Type: Spontaneous
  Country: US (occurrence: US)
  Receive Date: 20131220
  Receipt Date: 20140228
  Transmission Date: 20141002
  Serious: Yes (Death, Other)
  Sender: FDA-Public Use
  Company Number: US-INCYTE CORPORATION-2013IN003035

PATIENT
  Age: 80 Year
  Sex: Male
  Weight: 92.52 kg

DRUGS (6)
  1. JAKAFI [Suspect]
     Indication: MYELOFIBROSIS
     Dosage: 15 MG, QD
     Route: 048
     Dates: start: 20130701, end: 20130917
  2. EXJADE [Concomitant]
     Dosage: 125 MG, QD
     Route: 048
     Dates: start: 20130722
  3. TYLENOL                            /00020001/ [Concomitant]
     Dosage: 500 MG, QD
     Route: 048
     Dates: start: 20130722
  4. HERBAL [Concomitant]
     Dosage: 1 DF, QD
     Route: 048
     Dates: start: 20130722
  5. LEVAQUIN [Concomitant]
     Dosage: 500 MG, QD
     Route: 048
     Dates: start: 20130730
  6. DEFEROXAMINE [Concomitant]

REACTIONS (14)
  - Completed suicide [Fatal]
  - Depression [Fatal]
  - Platelet count decreased [Not Recovered/Not Resolved]
  - Myofascial spasm [Not Recovered/Not Resolved]
  - Insomnia [Not Recovered/Not Resolved]
  - Pain [Not Recovered/Not Resolved]
  - Upper respiratory tract infection [Not Recovered/Not Resolved]
  - Musculoskeletal stiffness [Not Recovered/Not Resolved]
  - Neck pain [Not Recovered/Not Resolved]
  - Fatigue [Not Recovered/Not Resolved]
  - Muscular weakness [Not Recovered/Not Resolved]
  - Arthralgia [Not Recovered/Not Resolved]
  - Oedema peripheral [Not Recovered/Not Resolved]
  - Dyspnoea exertional [Not Recovered/Not Resolved]
